FAERS Safety Report 4823745-8 (Version None)
Quarter: 2005Q4

REPORT INFORMATION
  Report Type: 
  Country: None (occurrence: None)
  Receive Date: 20051109
  Receipt Date: 20051101
  Transmission Date: 20060501
  Serious: Yes (Hospitalization)
  Sender: FDA-Public Use
  Company Number: US-ROCHE-423444

PATIENT
  Age: 52 Year
  Sex: Female
  Weight: 87.5 kg

DRUGS (7)
  1. PEGASYS [Suspect]
     Indication: HEPATITIS C
     Route: 058
     Dates: start: 20050630, end: 20051003
  2. COPEGUS [Suspect]
     Indication: HEPATITIS C
     Route: 048
     Dates: start: 20050630, end: 20050715
  3. COPEGUS [Suspect]
     Route: 048
     Dates: start: 20050715
  4. COPEGUS [Suspect]
     Route: 048
     Dates: end: 20051003
  5. WELLBUTRIN [Concomitant]
     Indication: DEPRESSION
     Dosage: IN THE MORNING.
     Route: 048
     Dates: start: 20050215
  6. EFFEXOR [Concomitant]
     Indication: DEPRESSION
     Dosage: IN THE AFTERNOON.
     Dates: start: 20050215, end: 20051003
  7. XANAX [Concomitant]
     Indication: DEPRESSION
     Dates: start: 20050215, end: 20051003

REACTIONS (6)
  - ANXIETY [None]
  - CHILLS [None]
  - DIFFICULTY IN WALKING [None]
  - DYSPHEMIA [None]
  - FATIGUE [None]
  - HAEMOGLOBIN DECREASED [None]
